FAERS Safety Report 9759617 (Version 1)
Quarter: 2013Q4

REPORT INFORMATION
  Report Type: Spontaneous
  Country: US (occurrence: None)
  Receive Date: 20131212
  Receipt Date: 20131212
  Transmission Date: 20140711
  Serious: Yes (Other)
  Sender: FDA-Public Use
  Company Number: 2060716

PATIENT
  Sex: Male

DRUGS (8)
  1. VINCRISTINE SULFATE [Suspect]
     Indication: HODGKIN^S DISEASE
  2. VINBLASTINE [Suspect]
     Indication: HODGKIN^S DISEASE
  3. MECHLORETHAMINE [Suspect]
     Indication: HODGKIN^S DISEASE
  4. PROCARBAZINE [Suspect]
     Indication: HODGKIN^S DISEASE
  5. PREDNISONE [Suspect]
     Indication: HODGKIN^S DISEASE
  6. DOXORUBICIN [Suspect]
     Indication: HODGKIN^S DISEASE
  7. BLEOMYCIN [Suspect]
     Indication: HODGKIN^S DISEASE
  8. THERAPEUTIC RADIOPHARMACEUTICALS [Suspect]
     Indication: SQUAMOUS CELL CARCINOMA
     Dosage: 6,840 XGY, UNKNOWN, UNKNOWN?5,000 CGY (UNKNOWN)?5,040 CGY (UNKNOWN)?

REACTIONS (5)
  - Dysphagia [None]
  - Hodgkin^s disease [None]
  - Speech disorder [None]
  - Aspiration [None]
  - Delayed effects of radiation [None]
